FAERS Safety Report 4579121-9 (Version None)
Quarter: 2005Q1

REPORT INFORMATION
  Report Type: 
  Country: None (occurrence: None)
  Receive Date: 20050121
  Receipt Date: 20040408
  Transmission Date: 20050727
  Serious: Yes (Hospitalization)
  Sender: FDA-Public Use
  Company Number: STA-AE-04-MTX-148

PATIENT
  Age: 73 Year
  Sex: Male

DRUGS (6)
  1. METHOTREXATE [Suspect]
     Indication: RHEUMATOID ARTHRITIS
     Dosage: 12.5 MG 1X PER 1 WK, ORAL
     Route: 048
     Dates: start: 20020812
  2. ENBREL [Suspect]
     Indication: RHEUMATOID ARTHRITIS
     Dosage: 25 MG 2X PER 1 WK, SC
     Route: 058
     Dates: start: 20021022, end: 20030217
  3. FOLIC ACID [Concomitant]
  4. CELEBREX [Concomitant]
  5. ULTRAM [Concomitant]
  6. DIURETICS (DIURETICS) [Concomitant]

REACTIONS (5)
  - CELLULITIS [None]
  - ERYTHEMA [None]
  - OEDEMA [None]
  - PRURITUS [None]
  - RASH [None]
